FAERS Safety Report 7135004-1 (Version None)
Quarter: 2010Q4

REPORT INFORMATION
  Report Type: 
  Country: None (occurrence: None)
  Receive Date: 20101203
  Receipt Date: 20101201
  Transmission Date: 20110411
  Serious: Yes (Hospitalization)
  Sender: FDA-Public Use
  Company Number: AU-MERCK-0603AUS00230

PATIENT
  Age: 66 Year
  Sex: Female
  Weight: 60 kg

DRUGS (6)
  1. ZOCOR [Suspect]
     Route: 048
     Dates: start: 20040903
  2. ROXITHROMYCIN [Suspect]
     Route: 048
     Dates: start: 20040917
  3. ASPIRIN [Concomitant]
     Indication: COAGULOPATHY
     Route: 048
  4. PERINDOPRIL ERBUMINE [Concomitant]
     Indication: BLOOD PRESSURE ABNORMAL
     Route: 048
  5. METFORMIN HYDROCHLORIDE [Concomitant]
     Indication: DIABETES MELLITUS
     Route: 048
  6. VERAPAMIL HYDROCHLORIDE [Concomitant]
     Indication: BLOOD PRESSURE ABNORMAL
     Route: 048

REACTIONS (3)
  - DRUG INTERACTION [None]
  - MYALGIA [None]
  - RHABDOMYOLYSIS [None]
